FAERS Safety Report 9377671 (Version 1)
Quarter: 2013Q3

REPORT INFORMATION
  Report Type: Spontaneous
  Country: DE (occurrence: DE)
  Receive Date: 20130701
  Receipt Date: 20130701
  Transmission Date: 20140515
  Serious: Yes (Hospitalization)
  Sender: FDA-Public Use
  Company Number: DE-GILEAD-2013-0077955

PATIENT
  Age: 29 Year
  Sex: Female

DRUGS (3)
  1. TRUVADA [Suspect]
     Indication: HIV INFECTION
     Dosage: UNK
     Route: 048
     Dates: start: 201001
  2. PREZISTA [Suspect]
     Indication: HIV INFECTION
     Dosage: 800 MG, QD
     Route: 048
     Dates: start: 201001
  3. NORVIR [Suspect]
     Indication: HIV INFECTION
     Dosage: 100 MG, QD
     Route: 048
     Dates: start: 201001

REACTIONS (6)
  - Exposure during pregnancy [Recovered/Resolved]
  - Abortion missed [Unknown]
  - Cervical incompetence [Unknown]
  - Placental disorder [Unknown]
  - Premature labour [Unknown]
  - Premature rupture of membranes [Unknown]
